FAERS Safety Report 24951032 (Version 1)
Quarter: 2025Q1

REPORT INFORMATION
  Report Type: Spontaneous
  Country: CO (occurrence: CO)
  Receive Date: 20250210
  Receipt Date: 20250210
  Transmission Date: 20250408
  Serious: Yes (Other)
  Sender: BAXTER
  Company Number: CO-BAXTER-2025BAX011090

PATIENT
  Age: 0 Year
  Sex: Male
  Weight: 1.445 kg

DRUGS (16)
  1. AMINO ACIDS, SOURCE UNSPECIFIED [Suspect]
     Active Substance: AMINO ACIDS, SOURCE UNSPECIFIED
     Indication: Foetal growth restriction
     Route: 042
     Dates: start: 20250128
  2. AMINO ACIDS, SOURCE UNSPECIFIED [Suspect]
     Active Substance: AMINO ACIDS, SOURCE UNSPECIFIED
     Indication: Parenteral nutrition
  3. DEXTROSE MONOHYDRATE [Suspect]
     Active Substance: DEXTROSE MONOHYDRATE
     Indication: Foetal growth restriction
     Route: 042
     Dates: start: 20250128
  4. DEXTROSE MONOHYDRATE [Suspect]
     Active Substance: DEXTROSE MONOHYDRATE
     Indication: Parenteral nutrition
  5. STERILE WATER [Suspect]
     Active Substance: WATER
     Indication: Foetal growth restriction
     Route: 042
     Dates: start: 20250128
  6. STERILE WATER [Suspect]
     Active Substance: WATER
     Indication: Parenteral nutrition
  7. POTASSIUM [Suspect]
     Active Substance: POTASSIUM
     Indication: Foetal growth restriction
     Route: 042
     Dates: start: 20250128
  8. POTASSIUM [Suspect]
     Active Substance: POTASSIUM
     Indication: Parenteral nutrition
  9. SMOFLIPID [Suspect]
     Active Substance: FISH OIL\MEDIUM-CHAIN TRIGLYCERIDES\OLIVE OIL\SOYBEAN OIL
     Indication: Foetal growth restriction
     Route: 042
     Dates: start: 20250128
  10. SMOFLIPID [Suspect]
     Active Substance: FISH OIL\MEDIUM-CHAIN TRIGLYCERIDES\OLIVE OIL\SOYBEAN OIL
     Indication: Parenteral nutrition
  11. MAGNESIUM [Suspect]
     Active Substance: MAGNESIUM
     Indication: Parenteral nutrition
     Route: 042
     Dates: start: 20250128
  12. MAGNESIUM [Suspect]
     Active Substance: MAGNESIUM
     Indication: Foetal growth restriction
  13. UNSPECIFIED INGREDIENT [Suspect]
     Active Substance: UNSPECIFIED INGREDIENT
     Indication: Foetal growth restriction
     Route: 042
     Dates: start: 20250128
  14. UNSPECIFIED INGREDIENT [Suspect]
     Active Substance: UNSPECIFIED INGREDIENT
     Indication: Parenteral nutrition
  15. NITROGEN [Suspect]
     Active Substance: NITROGEN
     Indication: Parenteral nutrition
     Route: 042
     Dates: start: 20250128
  16. NITROGEN [Suspect]
     Active Substance: NITROGEN
     Indication: Foetal growth restriction

REACTIONS (3)
  - Anuria [Unknown]
  - Incorrect dose administered by device [Unknown]
  - Device infusion issue [Unknown]

NARRATIVE: CASE EVENT DATE: 20250128
